FAERS Safety Report 21030021 (Version 1)
Quarter: 2022Q3

REPORT INFORMATION
  Report Type: Spontaneous
  Country: US (occurrence: None)
  Receive Date: 20220701
  Receipt Date: 20220701
  Transmission Date: 20221027
  Serious: No
  Sender: FDA-Public Use
  Company Number: US-ROCHE-2928754

PATIENT
  Sex: Female
  Weight: 61.290 kg

DRUGS (6)
  1. ACTEMRA [Suspect]
     Active Substance: TOCILIZUMAB
     Indication: Still^s disease
     Dosage: 162 MG/0.9 ML EVERY OTHER WEEK
     Route: 058
  2. ACTEMRA [Suspect]
     Active Substance: TOCILIZUMAB
  3. ACTEMRA [Suspect]
     Active Substance: TOCILIZUMAB
  4. METHOTREXATE [Suspect]
     Active Substance: METHOTREXATE
     Indication: Still^s disease
     Dosage: TAKES 6 TABLETS = 15 MG TOTAL ONCE A WEEK
     Route: 048
  5. PREDNISONE [Concomitant]
     Active Substance: PREDNISONE
     Indication: Still^s disease
     Route: 048
     Dates: start: 2019, end: 2019
  6. FOLIC ACID [Concomitant]
     Active Substance: FOLIC ACID
     Route: 048

REACTIONS (4)
  - Needle issue [Unknown]
  - Headache [Recovered/Resolved]
  - Pain [Recovered/Resolved]
  - Illness [Unknown]

NARRATIVE: CASE EVENT DATE: 20190101
